FAERS Safety Report 11800854 (Version 1)
Quarter: 2015Q4

REPORT INFORMATION
  Report Type: Spontaneous
  Country: US (occurrence: US)
  Receive Date: 20151204
  Receipt Date: 20151204
  Transmission Date: 20160305
  Serious: No
  Sender: FDA-Public Use
  Company Number: PHEH2015US025184

PATIENT
  Age: 72 Year
  Sex: Female

DRUGS (1)
  1. ESTRADIOL. [Suspect]
     Active Substance: ESTRADIOL
     Indication: HORMONE REPLACEMENT THERAPY
     Dosage: 1 DF, QD
     Route: 062
     Dates: start: 20151118, end: 20151119

REACTIONS (6)
  - Application site erythema [Recovering/Resolving]
  - Application site fissure [Recovering/Resolving]
  - Application site vesicles [Recovering/Resolving]
  - Application site pruritus [Recovering/Resolving]
  - Application site injury [Recovering/Resolving]
  - Application site exfoliation [Recovering/Resolving]

NARRATIVE: CASE EVENT DATE: 20151118
